FAERS Safety Report 14490165 (Version 2)
Quarter: 2018Q1

REPORT INFORMATION
  Report Type: Spontaneous
  Country: US (occurrence: US)
  Receive Date: 20180206
  Receipt Date: 20180212
  Transmission Date: 20180509
  Serious: Yes (Other)
  Sender: FDA-Public Use
  Company Number: US-009507513-1802USA002249

PATIENT
  Sex: Female

DRUGS (1)
  1. FOSAMAX [Suspect]
     Active Substance: ALENDRONATE SODIUM
     Indication: TOOTH RESORPTION
     Dosage: LONGER THAN 2 YEARS
     Route: 048

REACTIONS (2)
  - Dental restoration failure [Unknown]
  - Osteonecrosis [Unknown]
